FAERS Safety Report 9663116 (Version 3)
Quarter: 2013Q4

REPORT INFORMATION
  Report Type: Report from Study
  Country: JP (occurrence: JP)
  Receive Date: 20131101
  Receipt Date: 20131226
  Transmission Date: 20140711
  Serious: Yes (Death)
  Sender: FDA-Public Use
  Company Number: JP-ROCHE-1274810

PATIENT
  Age: 74 Year
  Sex: Male

DRUGS (3)
  1. ALTEPLASE [Suspect]
     Indication: EMBOLIC STROKE
     Route: 042
     Dates: start: 20130528
  2. RADICUT [Suspect]
     Indication: PRODUCT USED FOR UNKNOWN INDICATION
     Dosage: (BAG 30 MG  X2)
     Route: 041
     Dates: start: 20130528
  3. GLYCEOL [Concomitant]
     Route: 042
     Dates: start: 20130529, end: 20130603

REACTIONS (3)
  - Pneumonia [Fatal]
  - Asphyxia [Fatal]
  - Haematemesis [Recovered/Resolved]
